FAERS Safety Report 7323756-7 (Version None)
Quarter: 2011Q1

REPORT INFORMATION
  Report Type: 
  Country: None (occurrence: None)
  Receive Date: 20110301
  Receipt Date: 20110224
  Transmission Date: 20110831
  Serious: Yes (Life-Threatening, Hospitalization)
  Sender: FDA-Public Use
  Company Number: US-JNJFOC-20100806222

PATIENT
  Sex: Male

DRUGS (16)
  1. INSULIN [Concomitant]
     Indication: DIABETES MELLITUS
     Route: 065
  2. HEPARIN SODIUM [Concomitant]
     Route: 065
  3. APIXABAN [Suspect]
     Indication: THROMBOSIS PROPHYLAXIS
     Route: 048
  4. PLACEBO [Suspect]
     Indication: THROMBOSIS PROPHYLAXIS
     Route: 048
  5. PERCOCET [Concomitant]
     Route: 065
  6. HEPARIN [Concomitant]
     Route: 065
  7. NITROGLYCERIN [Concomitant]
     Route: 065
  8. ASPIRIN [Concomitant]
     Route: 065
  9. FENTANYL [Suspect]
     Indication: PAIN IN EXTREMITY
     Route: 048
  10. CARVEDILOL [Concomitant]
     Route: 065
  11. ROCEPHIN [Concomitant]
     Route: 065
  12. DIURETIC [Concomitant]
     Route: 065
  13. VANCOMYCIN [Concomitant]
     Route: 065
  14. CLOPIDOGREL BISULFATE [Concomitant]
     Route: 065
  15. POTASSIUM [Concomitant]
     Route: 065
  16. ASPIRIN [Concomitant]
     Route: 065

REACTIONS (4)
  - COMA [None]
  - INTENTIONAL DRUG MISUSE [None]
  - RENAL FAILURE ACUTE [None]
  - ACCIDENTAL OVERDOSE [None]
